FAERS Safety Report 8178424-9 (Version None)
Quarter: 2012Q1

REPORT INFORMATION
  Report Type: 
  Country: None (occurrence: None)
  Receive Date: 20120301
  Receipt Date: 20120227
  Transmission Date: 20120608
  Serious: Yes (Other)
  Sender: FDA-Public Use
  Company Number: JP-ABBOTT-12P-087-0909187-00

PATIENT
  Age: 62 Year
  Sex: Female

DRUGS (3)
  1. HUMIRA [Suspect]
  2. HUMIRA [Suspect]
  3. HUMIRA [Suspect]
     Indication: CROHN'S DISEASE
     Route: 058
     Dates: start: 20111208, end: 20111208

REACTIONS (9)
  - ABNORMAL BEHAVIOUR [None]
  - DECREASED APPETITE [None]
  - SPEECH DISORDER [None]
  - MEMORY IMPAIRMENT [None]
  - DISORIENTATION [None]
  - DELIRIUM [None]
  - MALNUTRITION [None]
  - METABOLIC DISORDER [None]
  - METABOLIC ENCEPHALOPATHY [None]
